FAERS Safety Report 18260293 (Version 1)
Quarter: 2020Q3

REPORT INFORMATION
  Report Type: Spontaneous
  Country: FR (occurrence: FR)
  Receive Date: 20200914
  Receipt Date: 20200914
  Transmission Date: 20201103
  Serious: Yes (Hospitalization)
  Sender: FDA-Public Use
  Company Number: FR-AUROBINDO-AUR-APL-2020-047178

PATIENT
  Age: 53 Year
  Sex: Male

DRUGS (4)
  1. KETOPROFEN. [Suspect]
     Active Substance: KETOPROFEN
     Indication: TOXICITY TO VARIOUS AGENTS
     Dosage: 10 DOSAGE FORM
     Route: 048
     Dates: start: 20200816, end: 20200816
  2. PARACETAMOL [Suspect]
     Active Substance: ACETAMINOPHEN
     Indication: TOXICITY TO VARIOUS AGENTS
     Dosage: 8 GRAM
     Route: 048
     Dates: start: 20200816, end: 20200816
  3. TRAMADOL. [Suspect]
     Active Substance: TRAMADOL
     Indication: TOXICITY TO VARIOUS AGENTS
     Dosage: 750 MILLIGRAM
     Route: 048
     Dates: start: 20200816, end: 20200816
  4. THIOCOLCHICOSIDE [Suspect]
     Active Substance: THIOCOLCHICOSIDE
     Indication: TOXICITY TO VARIOUS AGENTS
     Dosage: 4 DOSAGE FORM
     Route: 048
     Dates: start: 20200816, end: 20200816

REACTIONS (2)
  - Analgesic drug level increased [Recovering/Resolving]
  - Vomiting [Recovered/Resolved]

NARRATIVE: CASE EVENT DATE: 20200816
